FAERS Safety Report 5320858-1 (Version None)
Quarter: 2007Q2

REPORT INFORMATION
  Report Type: 
  Country: None (occurrence: None)
  Receive Date: 20070503
  Receipt Date: 20070425
  Transmission Date: 20071010
  Serious: Yes (Death, Hospitalization)
  Sender: FDA-Public Use
  Company Number: 2006SP008511

PATIENT
  Age: 68 Year
  Sex: Male
  Weight: 110 kg

DRUGS (3)
  1. TEMOZOLOMIDE (S-P) (TEMOZOLOMIDE) [Suspect]
     Indication: MALIGNANT GLIOMA
     Dosage: 235 MG; QD; PO
     Route: 048
     Dates: start: 20061030, end: 20061119
  2. DEXAMETHASONE TAB [Suspect]
     Indication: DRUG USE FOR UNKNOWN INDICATION
     Dosage: 8 MG; QD; PO
     Route: 048
     Dates: start: 20061016
  3. CARBAMAZEPINE [Suspect]
     Indication: DRUG USE FOR UNKNOWN INDICATION
     Dosage: 100 MG; QD; PO
     Route: 048
     Dates: start: 20061127

REACTIONS (12)
  - BALANCE DISORDER [None]
  - BODY TEMPERATURE INCREASED [None]
  - CONFUSIONAL STATE [None]
  - CONVULSION [None]
  - DISEASE PROGRESSION [None]
  - GENERAL PHYSICAL HEALTH DETERIORATION [None]
  - NEUTROPHIL COUNT ABNORMAL [None]
  - ORAL INTAKE REDUCED [None]
  - PLATELET COUNT DECREASED [None]
  - PURPURA [None]
  - SOMNOLENCE [None]
  - STAPHYLOCOCCAL INFECTION [None]
